FAERS Safety Report 10368091 (Version 2)
Quarter: 2015Q1

REPORT INFORMATION
  Report Type: Spontaneous
  Country: CO (occurrence: CO)
  Receive Date: 20140807
  Receipt Date: 20150316
  Transmission Date: 20150720
  Serious: Yes (Death)
  Sender: FDA-Public Use
  Company Number: CO-NOVOPROD-418152

PATIENT
  Age: 21 Year
  Sex: Male

DRUGS (1)
  1. NOVOSEVEN RT [Suspect]
     Active Substance: COAGULATION FACTOR VIIA RECOMBINANT HUMAN
     Indication: TRAUMATIC HAEMORRHAGE
     Dosage: 14 MG, QD
     Route: 065
     Dates: start: 20140719, end: 20140729

REACTIONS (2)
  - Traumatic haemorrhage [Fatal]
  - Product use issue [Unknown]

NARRATIVE: CASE EVENT DATE: 20140719
